FAERS Safety Report 4325368-6 (Version None)
Quarter: 2004Q1

REPORT INFORMATION
  Report Type: 
  Country: None (occurrence: None)
  Receive Date: 20040324
  Receipt Date: 20040309
  Transmission Date: 20041129
  Serious: Yes (Other)
  Sender: FDA-Public Use
  Company Number: AU-JNJFOC-20040303870

PATIENT
  Age: 25 Year
  Sex: Female

DRUGS (2)
  1. TRAMAL (TRAMADOL HYDROCHLORIDE) TABLETS [Suspect]
     Indication: GENERAL SYMPTOM
     Dosage: 100 MG, 1 IN 1 DAY; ORAL
     Route: 048
     Dates: start: 20031206
  2. NORIMIN (ETHINYL ESTRADIOL W/NORGESTREL [Concomitant]

REACTIONS (5)
  - DIZZINESS [None]
  - HALLUCINATION, VISUAL [None]
  - MUSCLE CONTRACTIONS INVOLUNTARY [None]
  - MUSCLE TWITCHING [None]
  - VERTIGO [None]
